FAERS Safety Report 6073013-4 (Version None)
Quarter: 2009Q1

REPORT INFORMATION
  Report Type: 
  Country: None (occurrence: None)
  Receive Date: 20090209
  Receipt Date: 20090209
  Transmission Date: 20090719
  Serious: Yes (Other)
  Sender: FDA-Public Use
  Company Number: None

PATIENT

DRUGS (2)
  1. VYVANSE [Suspect]
     Indication: ATTENTION DEFICIT/HYPERACTIVITY DISORDER
     Dosage: 1 CAP WD PO
     Route: 048
     Dates: start: 20081101, end: 20081114
  2. VYVANSE [Suspect]
     Indication: ATTENTION DEFICIT/HYPERACTIVITY DISORDER
     Dosage: 1 CAP WD PO
     Route: 048
     Dates: start: 20081215, end: 20081217

REACTIONS (3)
  - ANXIETY [None]
  - DEPRESSION [None]
  - RASH [None]
